FAERS Safety Report 10983637 (Version 1)
Quarter: 2015Q2

REPORT INFORMATION
  Report Type: Spontaneous
  Country: US (occurrence: None)
  Receive Date: 20150402
  Receipt Date: 20150402
  Transmission Date: 20150821
  Serious: No
  Sender: FDA-Public Use
  Company Number: None

PATIENT
  Age: 47 Year
  Sex: Female
  Weight: 90.72 kg

DRUGS (11)
  1. MOTRIN [Concomitant]
     Active Substance: IBUPROFEN
  2. GLUCOPHAGE [Concomitant]
     Active Substance: METFORMIN HYDROCHLORIDE
  3. OMEGA-3-ACID ETHYL ESTERS USP [Suspect]
     Active Substance: OMEGA-3-ACID ETHYL ESTERS
     Indication: TYPE 1 DIABETES MELLITUS
     Dosage: 1 FOUR TIMES DAILY TAKEN BY MOUTH
     Route: 048
  4. LOVAZA [Concomitant]
     Active Substance: OMEGA-3-ACID ETHYL ESTERS
  5. LANTUS SOLO STAR INSULIN [Concomitant]
  6. NORCO [Concomitant]
     Active Substance: ACETAMINOPHEN\HYDROCODONE BITARTRATE
  7. ZOLOFT [Concomitant]
     Active Substance: SERTRALINE HYDROCHLORIDE
  8. XANAX [Concomitant]
     Active Substance: ALPRAZOLAM
  9. ONGLYZA [Concomitant]
     Active Substance: SAXAGLIPTIN HYDROCHLORIDE
  10. SOMA [Concomitant]
     Active Substance: CARISOPRODOL
  11. CRESTOR [Concomitant]
     Active Substance: ROSUVASTATIN CALCIUM

REACTIONS (5)
  - Blood triglycerides increased [None]
  - Product quality issue [None]
  - Malaise [None]
  - Glycosylated haemoglobin increased [None]
  - Product substitution issue [None]

NARRATIVE: CASE EVENT DATE: 20150401
